FAERS Safety Report 5389980-8 (Version None)
Quarter: 2007Q3

REPORT INFORMATION
  Report Type: 
  Country: None (occurrence: None)
  Receive Date: 20070716
  Receipt Date: 20070716
  Transmission Date: 20080115
  Serious: Yes (Hospitalization)
  Sender: FDA-Public Use
  Company Number: None

PATIENT
  Age: 83 Year
  Sex: Male

DRUGS (4)
  1. MIRTAZAPINE [Suspect]
     Dosage: 30 MG AT BEDTIME PO
     Route: 048
  2. OLANZAPINE [Suspect]
     Dosage: 5MG AT BEDTIME PO
     Route: 048
  3. NORVASC [Concomitant]
  4. PROTONIX [Concomitant]

REACTIONS (4)
  - CONDITION AGGRAVATED [None]
  - DEPRESSION [None]
  - MALNUTRITION [None]
  - SEROTONIN SYNDROME [None]
